FAERS Safety Report 16480074 (Version 1)
Quarter: 2019Q2

REPORT INFORMATION
  Report Type: Spontaneous
  Country: US (occurrence: US)
  Receive Date: 20190626
  Receipt Date: 20190626
  Transmission Date: 20190711
  Serious: Yes (Hospitalization, Other)
  Sender: FDA-Public Use
  Company Number: US-AMNEAL PHARMACEUTICALS-2019AMN00583

PATIENT
  Age: 36 Year
  Sex: Male

DRUGS (1)
  1. VIGABATRIN. [Suspect]
     Active Substance: VIGABATRIN
     Indication: SEIZURE
     Dosage: 1000 MG, 3X/DAY
     Route: 048

REACTIONS (3)
  - Dizziness [Unknown]
  - Panic attack [Unknown]
  - Condition aggravated [Unknown]

NARRATIVE: CASE EVENT DATE: 201904
